FAERS Safety Report 9892245 (Version 1)
Quarter: 2014Q1

REPORT INFORMATION
  Report Type: Spontaneous
  Country: US (occurrence: US)
  Receive Date: 20140212
  Receipt Date: 20140212
  Transmission Date: 20141002
  Serious: No
  Sender: FDA-Public Use
  Company Number: US-MALLINCKRODT-T201305071

PATIENT
  Age: 59 Year
  Sex: Male
  Weight: 133.79 kg

DRUGS (7)
  1. FENTANYL TRANSDERMAL SYSTEM [Suspect]
     Indication: BACK PAIN
     Dosage: 75 UG/HR, 1 Q 72 HOURS
     Route: 062
     Dates: start: 20131109
  2. PROZAC [Concomitant]
     Indication: DEPRESSION
     Dosage: UNK
  3. REQUIP [Concomitant]
     Indication: RESTLESS LEGS SYNDROME
     Dosage: UNK
  4. VERAPAMIL [Concomitant]
     Indication: HYPERTENSION
     Dosage: UNK
  5. LISINOPRIL [Concomitant]
     Indication: HYPERTENSION
     Dosage: UNK
  6. SOMA [Concomitant]
     Indication: MUSCLE RELAXANT THERAPY
     Dosage: UNK
  7. PERCOCET                           /00446701/ [Concomitant]
     Indication: BREAKTHROUGH PAIN
     Dosage: 10/325 MG, TID
     Route: 048

REACTIONS (3)
  - Drug screen negative [Unknown]
  - Influenza like illness [Recovered/Resolved]
  - Drug ineffective [Recovered/Resolved]
